FAERS Safety Report 9652177 (Version 1)
Quarter: 2013Q4

REPORT INFORMATION
  Report Type: Spontaneous
  Country: JP (occurrence: None)
  Receive Date: 20131025
  Receipt Date: 20131025
  Transmission Date: 20140711
  Serious: Yes (Death)
  Sender: FDA-Public Use
  Company Number: JP-013237

PATIENT
  Age: 90 Year
  Sex: Male

DRUGS (1)
  1. GONAX [Suspect]
     Indication: PROSTATE CANCER
     Route: 058
     Dates: start: 20130911, end: 20130911

REACTIONS (4)
  - Pyrexia [None]
  - Tremor [None]
  - Refusal of treatment by patient [None]
  - Hepatic failure [None]
